FAERS Safety Report 6186001-4 (Version None)
Quarter: 2009Q2

REPORT INFORMATION
  Report Type: 
  Country: None (occurrence: None)
  Receive Date: 20090507
  Receipt Date: 20090501
  Transmission Date: 20091009
  Serious: Yes (Death)
  Sender: FDA-Public Use
  Company Number: 2009US000997

PATIENT
  Sex: Male

DRUGS (12)
  1. PROGRAF [Suspect]
     Indication: RENAL TRANSPLANT
     Dosage: 3 MG, UID/QD
  2. DILTIAZEM ER (DILTIAZEM HYDROCHLORIDE) [Concomitant]
  3. FLONASE [Concomitant]
  4. METOLAZONE [Concomitant]
  5. AMILORIDE HCL (AMILORIDE HYDROCHLORIDE) [Concomitant]
  6. CARVEDILOL [Concomitant]
  7. CARAFATE [Concomitant]
  8. OXYCODONE HCL [Concomitant]
  9. REGLAN [Concomitant]
  10. CELLCEPT [Concomitant]
  11. KLOR-CON M20 (POTASSIUM CHLORIDE) [Concomitant]
  12. LASIX [Concomitant]

REACTIONS (1)
  - AMYLOIDOSIS [None]
